FAERS Safety Report 6782665-2 (Version None)
Quarter: 2010Q2

REPORT INFORMATION
  Report Type: 
  Country: None (occurrence: None)
  Receive Date: 20100621
  Receipt Date: 20100607
  Transmission Date: 20101027
  Serious: Yes (Other)
  Sender: FDA-Public Use
  Company Number: US-ELI_LILLY_AND_COMPANY-US201006002149

PATIENT
  Age: 62 Year
  Sex: Female

DRUGS (8)
  1. CYMBALTA [Suspect]
     Dosage: UNK, UNK
  2. LYRICA [Concomitant]
     Indication: FIBROMYALGIA
     Dosage: UNK, UNK
     Dates: start: 20100401
  3. WELLBUTRIN [Concomitant]
     Indication: DEPRESSION
     Dosage: 150 MG, 2/D
  4. CELEBREX [Concomitant]
     Indication: PAIN
     Dosage: 200 MG, 2/D
  5. FUROSEMIDE [Concomitant]
     Indication: FLUID RETENTION
     Dosage: 40 MG, DAILY (1/D)
  6. LIPITOR [Concomitant]
     Indication: BLOOD CHOLESTEROL ABNORMAL
     Dosage: 20 MG, DAILY (1/D)
  7. NEXIUM [Concomitant]
     Indication: GASTROOESOPHAGEAL REFLUX DISEASE
     Dosage: 40 MG, DAILY (1/D)
  8. ABILIFY [Concomitant]
     Indication: DEPRESSION
     Dosage: 4 MG, DAILY (1/D)

REACTIONS (4)
  - COGNITIVE DISORDER [None]
  - SOMNOLENCE [None]
  - TREMOR [None]
  - WEIGHT INCREASED [None]
